FAERS Safety Report 5136085-7 (Version None)
Quarter: 2006Q4

REPORT INFORMATION
  Report Type: 
  Country: None (occurrence: None)
  Receive Date: 20061027
  Receipt Date: 20061018
  Transmission Date: 20070319
  Serious: Yes (Other)
  Sender: FDA-Public Use
  Company Number: US-JNJFOC-20060604513

PATIENT
  Sex: Female

DRUGS (7)
  1. REMICADE [Suspect]
  2. REMICADE [Suspect]
  3. REMICADE [Suspect]
  4. REMICADE [Suspect]
     Indication: RHEUMATOID ARTHRITIS
  5. LEFLUNOMIDE [Concomitant]
     Indication: RHEUMATOID ARTHRITIS
  6. PREDNISONE TAB [Concomitant]
     Indication: RHEUMATOID ARTHRITIS
  7. RISEDRONATE SODIUM [Concomitant]
     Indication: OSTEOPENIA

REACTIONS (7)
  - ANXIETY [None]
  - DISCOMFORT [None]
  - INFECTION [None]
  - INSOMNIA [None]
  - PRURITUS [None]
  - PUSTULAR PSORIASIS [None]
  - SKIN DISORDER [None]
